FAERS Safety Report 7006721-9 (Version None)
Quarter: 2010Q3

REPORT INFORMATION
  Report Type: 
  Country: None (occurrence: None)
  Receive Date: 20100922
  Receipt Date: 20100914
  Transmission Date: 20110219
  Serious: Yes (Hospitalization)
  Sender: FDA-Public Use
  Company Number: US-BIOGENIDEC-2010BI024077

PATIENT
  Age: 55 Year
  Sex: Female
  Weight: 113 kg

DRUGS (2)
  1. AVONEX [Suspect]
     Indication: MULTIPLE SCLEROSIS
     Route: 030
     Dates: start: 20100208, end: 20100312
  2. KEPPRA [Concomitant]
     Indication: CONVULSION

REACTIONS (7)
  - ADVERSE DRUG REACTION [None]
  - CONVULSION [None]
  - DECREASED APPETITE [None]
  - HYPOTENSION [None]
  - INFLUENZA LIKE ILLNESS [None]
  - MULTIPLE SCLEROSIS RELAPSE [None]
  - SEPSIS [None]
